FAERS Safety Report 4717427-0 (Version None)
Quarter: 2005Q3

REPORT INFORMATION
  Report Type: 
  Country: None (occurrence: None)
  Receive Date: 20050715
  Receipt Date: 20050701
  Transmission Date: 20060218
  Serious: Yes (Hospitalization, Other)
  Sender: FDA-Public Use
  Company Number: 2005BI004292

PATIENT
  Age: 56 Year
  Sex: Female
  Weight: 72.5755 kg

DRUGS (4)
  1. AVONEX [Suspect]
     Indication: MULTIPLE SCLEROSIS
     Dosage: 30 UG; QW; IM
     Route: 030
     Dates: start: 20030206
  2. AVONEX [Suspect]
     Indication: MULTIPLE SCLEROSIS
     Dosage: 30 UG; QW; IM
     Route: 030
     Dates: end: 20050301
  3. LANOXIN [Concomitant]
  4. DITROPAN [Concomitant]

REACTIONS (9)
  - ASTHENIA [None]
  - BREAST CANCER FEMALE [None]
  - CHILLS [None]
  - DECUBITUS ULCER [None]
  - DYSMENORRHOEA [None]
  - INFECTION [None]
  - KIDNEY INFECTION [None]
  - PYREXIA [None]
  - SEPSIS [None]
